FAERS Safety Report 24037407 (Version 3)
Quarter: 2024Q3

REPORT INFORMATION
  Report Type: Spontaneous
  Country: JP (occurrence: JP)
  Receive Date: 20240702
  Receipt Date: 20240910
  Transmission Date: 20241016
  Serious: Yes (Hospitalization)
  Sender: GLAXOSMITHKLINE
  Company Number: None

PATIENT

DRUGS (9)
  1. NUCALA [Suspect]
     Active Substance: MEPOLIZUMAB
     Indication: Eosinophilic granulomatosis with polyangiitis
     Dosage: 300 MG, Q4W
     Route: 058
     Dates: start: 20231212
  2. PREDONINE [Concomitant]
     Active Substance: PREDNISOLONE
     Dosage: 5 MG, 1D, AFTER BREAKFAST
  3. ALENDRONATE [Concomitant]
     Active Substance: ALENDRONATE SODIUM
     Dosage: 35 MG, WE, ON AWAKENING
  4. SULFAMETHOXAZOLE\TRIMETHOPRIM [Concomitant]
     Active Substance: SULFAMETHOXAZOLE\TRIMETHOPRIM
     Dosage: 0.25 G, 1D, AFTER BREAKFAST
  5. METOCLOPRAMIDE [Concomitant]
     Active Substance: METOCLOPRAMIDE
     Dosage: 5 MG, TID, BEFORE BREAKFAST, LUNCH AND DINNER
  6. CELECOXIB [Concomitant]
     Active Substance: CELECOXIB
     Dosage: 100 MG, BID, AFTER BREAKFAST AND DINNER
  7. URSODIOL [Concomitant]
     Active Substance: URSODIOL
     Dosage: 3 DF, TID, AFTER BREAKFAST, LUNCH AND DINNER
  8. FLOPROPIONE [Concomitant]
     Active Substance: FLOPROPIONE
     Dosage: 80 MG, TID, AFTER BREAKFAST, LUNCH AND DINNER
  9. VONOPRAZAN FUMARATE [Concomitant]
     Active Substance: VONOPRAZAN FUMARATE
     Dosage: 10 MG, 1D, AFTER BREAKFAST

REACTIONS (1)
  - Primary biliary cholangitis [Recovering/Resolving]
